FAERS Safety Report 20802585 (Version 1)
Quarter: 2022Q2

REPORT INFORMATION
  Report Type: Spontaneous
  Country: US (occurrence: None)
  Receive Date: 20220509
  Receipt Date: 20220509
  Transmission Date: 20220721
  Serious: Yes (Other)
  Sender: FDA-Public Use
  Company Number: None

PATIENT
  Age: 58 Year
  Sex: Male

DRUGS (2)
  1. TAMSULOSIN [Suspect]
     Active Substance: TAMSULOSIN
     Indication: Back pain
     Dosage: FREQUENCY : DAILY;?
     Route: 048
     Dates: start: 20220407
  2. TAMSULOSIN [Suspect]
     Active Substance: TAMSULOSIN
     Indication: Musculoskeletal pain

REACTIONS (11)
  - Dizziness [None]
  - Somnolence [None]
  - Rhinorrhoea [None]
  - Cough [None]
  - Back pain [None]
  - Chest pain [None]
  - Nausea [None]
  - Diarrhoea [None]
  - Vision blurred [None]
  - Insomnia [None]
  - Loss of consciousness [None]

NARRATIVE: CASE EVENT DATE: 20220407
